FAERS Safety Report 26141848 (Version 2)
Quarter: 2025Q4

REPORT INFORMATION
  Report Type: Spontaneous
  Country: US (occurrence: US)
  Receive Date: 20251210
  Receipt Date: 20251210
  Transmission Date: 20260118
  Serious: Yes (Other)
  Sender: ABBVIE
  Company Number: US-ABBVIE-6583280

PATIENT
  Age: 33 Year
  Sex: Female
  Weight: 54.431 kg

DRUGS (4)
  1. LINZESS [Suspect]
     Active Substance: LINACLOTIDE
     Indication: Inflammatory bowel disease
     Route: 048
     Dates: start: 202512
  2. LINZESS [Suspect]
     Active Substance: LINACLOTIDE
     Indication: Inflammatory bowel disease
     Route: 048
     Dates: start: 2017, end: 2020
  3. MESALAMINE [Concomitant]
     Active Substance: MESALAMINE
     Indication: Inflammatory bowel disease
  4. LEVOTHYROXINE [Concomitant]
     Active Substance: LEVOTHYROXINE
     Indication: Thyroid cancer

REACTIONS (2)
  - Pancreatic failure [Unknown]
  - Polyp [Unknown]

NARRATIVE: CASE EVENT DATE: 20250101
